FAERS Safety Report 26086788 (Version 3)
Quarter: 2025Q4

REPORT INFORMATION
  Report Type: Spontaneous
  Country: JP (occurrence: JP)
  Receive Date: 20251125
  Receipt Date: 20251219
  Transmission Date: 20260118
  Serious: Yes (Hospitalization, Other)
  Sender: DAIICHI
  Company Number: JP-DSJP-DS-2025-177839-JPAA

PATIENT
  Age: 72 Year
  Sex: Female
  Weight: 52.6 kg

DRUGS (15)
  1. ENHERTU [Suspect]
     Active Substance: FAM-TRASTUZUMAB DERUXTECAN-NXKI
     Indication: HER2 positive breast cancer
     Dosage: 5.4 MG/KG
     Route: 041
     Dates: start: 20241120, end: 20241120
  2. MEROPENEM [Concomitant]
     Active Substance: MEROPENEM
     Indication: Cholecystitis infective
     Dosage: 0.5 G/DAY
     Route: 041
     Dates: start: 20241208, end: 20241225
  3. YD SOLITA T NO.1 [Concomitant]
     Indication: Nausea
     Dosage: 1000ML/DAY
     Route: 041
     Dates: start: 20241121, end: 20241130
  4. PRIMPERAN [Concomitant]
     Active Substance: METOCLOPRAMIDE HYDROCHLORIDE
     Indication: Nausea
     Dosage: 10 MG/DAY
     Route: 042
     Dates: start: 20241121, end: 20241130
  5. VEEN D [CALCIUM CHLORIDE DIHYDRATE;GLUCOSE;POTASSIUM CHLORIDE;SODIUM A [Concomitant]
     Indication: Nausea
     Dosage: 1000 ML/DAY
     Route: 041
     Dates: start: 20241126, end: 20241129
  6. AMINO ACIDS\DEXTROSE\ELECTROLYTES NOS\MINERALS\VITAMINS [Concomitant]
     Active Substance: AMINO ACIDS\DEXTROSE\ELECTROLYTES NOS\MINERALS\VITAMINS
     Indication: Nausea
     Dosage: 2000ML/DAY
     Route: 041
     Dates: start: 20241130, end: 20241202
  7. AMINO ACIDS\DEXTROSE\ELECTROLYTES NOS\MINERALS\VITAMINS [Concomitant]
     Active Substance: AMINO ACIDS\DEXTROSE\ELECTROLYTES NOS\MINERALS\VITAMINS
     Indication: Acute kidney injury
     Dosage: 1000 ML/DAY
     Route: 041
     Dates: start: 20241219, end: 20241220
  8. AMINO ACIDS\DEXTROSE\ELECTROLYTES NOS\MINERALS\VITAMINS [Concomitant]
     Active Substance: AMINO ACIDS\DEXTROSE\ELECTROLYTES NOS\MINERALS\VITAMINS
     Indication: Nausea
     Dosage: 2000 ML/DAY
     Route: 041
     Dates: start: 20241203, end: 20241207
  9. AMINO ACIDS\DEXTROSE\ELECTROLYTES NOS\MINERALS\VITAMINS [Concomitant]
     Active Substance: AMINO ACIDS\DEXTROSE\ELECTROLYTES NOS\MINERALS\VITAMINS
     Indication: Acute kidney injury
     Dosage: 1000 ML/DAY
     Route: 041
     Dates: start: 20241221, end: 20241223
  10. YD SOLITA T NO.1 [Concomitant]
     Indication: Nausea
     Dosage: 1500 ML/DAY
     Route: 041
     Dates: start: 20241208, end: 20241213
  11. YD SOLITA T NO.1 [Concomitant]
     Indication: Acute kidney injury
     Dosage: 2000 ML/DAY
     Route: 041
     Dates: start: 20241208, end: 20241208
  12. YD SOLITA T NO.1 [Concomitant]
     Dosage: 1500 ML/DAY
     Route: 041
     Dates: start: 20241209, end: 20241210
  13. YD SOLITA T NO.1 [Concomitant]
     Dosage: 1000 ML/DAY
     Route: 041
     Dates: start: 20241211, end: 20241215
  14. YD SOLITA T NO.1 [Concomitant]
     Dosage: 500 ML/DAY
     Route: 041
     Dates: start: 20241216, end: 20241216
  15. PIPERACILLIN SODIUM\TAZOBACTAM SODIUM [Concomitant]
     Active Substance: PIPERACILLIN SODIUM\TAZOBACTAM SODIUM
     Indication: Pyrexia
     Dosage: 4.5 G, TID
     Route: 041
     Dates: start: 20241130

REACTIONS (4)
  - Nausea [Recovered/Resolved]
  - Acute kidney injury [Recovered/Resolved]
  - Cholecystitis infective [Recovered/Resolved]
  - Herpes zoster [Recovering/Resolving]

NARRATIVE: CASE EVENT DATE: 20241121
